FAERS Safety Report 22970747 (Version 2)
Quarter: 2023Q4

REPORT INFORMATION
  Report Type: Report from Study
  Country: TH (occurrence: None)
  Receive Date: 20230922
  Receipt Date: 20231004
  Transmission Date: 20240109
  Serious: Yes (Hospitalization, Other)
  Sender: FDA-Public Use
  Company Number: 2022A235127

PATIENT
  Age: 912 Month
  Sex: Female

DRUGS (1)
  1. TAGRISSO [Suspect]
     Active Substance: OSIMERTINIB
     Indication: Non-small cell lung cancer metastatic
     Route: 048
     Dates: start: 20180614, end: 2023

REACTIONS (8)
  - Metastases to spine [Not Recovered/Not Resolved]
  - Gastric ulcer [Unknown]
  - Upper limb fracture [Recovering/Resolving]
  - Fall [Unknown]
  - Lower limb fracture [Unknown]
  - Gait disturbance [Not Recovered/Not Resolved]
  - Insomnia [Unknown]
  - Syncope [Recovered/Resolved]

NARRATIVE: CASE EVENT DATE: 20220201
